FAERS Safety Report 8571471 (Version 3)
Quarter: 2012Q4

REPORT INFORMATION
  Report Type: 
  Country: GB (occurrence: GB)
  Receive Date: 20120521
  Receipt Date: 20120928
  Transmission Date: 20130627
  Serious: Yes (Hospitalization)
  Sender: FDA-Public Use
  Company Number: PHHY2012GB041368

PATIENT
  Age: 36 Year
  Sex: Female

DRUGS (7)
  1. CITALOPRAM [Suspect]
     Dosage: 40 mg, UNK
  2. CITALOPRAM [Suspect]
     Dosage: 20 mg, UNK
     Dates: start: 20120419
  3. XEPLION [Suspect]
     Indication: PSYCHOTIC DISORDER
     Dosage: 150 mg, UNK
     Route: 030
     Dates: start: 20120329
  4. XEPLION [Suspect]
     Dosage: 100 mg, UNK
     Route: 030
  5. LORAZEPAM [Concomitant]
  6. PROMETHAZINE [Concomitant]
  7. DIAZEPAM [Concomitant]

REACTIONS (7)
  - Extrapyramidal disorder [Recovering/Resolving]
  - Musculoskeletal stiffness [Recovered/Resolved]
  - Psychotic disorder [Unknown]
  - Agitation [Recovered/Resolved]
  - Akathisia [Recovered/Resolved]
  - Catatonia [Unknown]
  - Antipsychotic drug level increased [Unknown]
